FAERS Safety Report 25167485 (Version 1)
Quarter: 2025Q2

REPORT INFORMATION
  Report Type: Spontaneous
  Country: US (occurrence: None)
  Receive Date: 20250405
  Receipt Date: 20250405
  Transmission Date: 20250717
  Serious: Yes (Hospitalization)
  Sender: FDA-CTU
  Company Number: None

PATIENT
  Age: 30 Year
  Sex: Male
  Weight: 59.1 kg

DRUGS (4)
  1. CISPLATIN [Suspect]
     Active Substance: CISPLATIN
  2. FILGRASTIM [Suspect]
     Active Substance: FILGRASTIM
  3. IFOSFAMIDE [Suspect]
     Active Substance: IFOSFAMIDE
  4. TAXOL [Suspect]
     Active Substance: PACLITAXEL

REACTIONS (5)
  - Sinus tachycardia [None]
  - Pyrexia [None]
  - Lung opacity [None]
  - Pneumonia [None]
  - Lung consolidation [None]

NARRATIVE: CASE EVENT DATE: 20221118
